FAERS Safety Report 5242930-7 (Version None)
Quarter: 2007Q1

REPORT INFORMATION
  Report Type: 
  Country: None (occurrence: None)
  Receive Date: 20070221
  Receipt Date: 20070212
  Transmission Date: 20070707
  Serious: Yes (Death)
  Sender: FDA-Public Use
  Company Number: US-GILEAD-2006-0010736

PATIENT
  Sex: Male
  Weight: 66.284 kg

DRUGS (10)
  1. ATRIPLA [Suspect]
     Indication: HIV INFECTION
     Route: 048
     Dates: start: 20060928, end: 20061101
  2. IBUPROFEN [Concomitant]
     Indication: MYALGIA
     Dates: start: 20060217, end: 20060901
  3. LIPITOR [Concomitant]
     Indication: HYPERTRIGLYCERIDAEMIA
     Dates: start: 20060131, end: 20060901
  4. ANUSOL HC [Concomitant]
     Indication: HAEMORRHOIDS
     Dates: start: 20040401, end: 20060901
  5. SILDENAFIL CITRATE [Concomitant]
     Indication: ERECTILE DYSFUNCTION
     Dates: start: 20060617, end: 20060901
  6. TYLENOL [Concomitant]
     Indication: MYALGIA
     Dates: start: 20050724, end: 20060901
  7. NANDROLONE DECANOATE [Concomitant]
     Indication: FATIGUE
     Dates: start: 20041027, end: 20060901
  8. AMLACTIN [Concomitant]
     Indication: PRURITUS
     Dates: start: 20040513, end: 20060901
  9. TRIAMCINOLONE [Concomitant]
     Indication: SEBORRHOEA
     Dates: start: 20031223, end: 20060901
  10. MULTI-VITAMIN [Concomitant]
     Indication: MEDICAL DIET
     Dates: start: 20040203, end: 20060901

REACTIONS (1)
  - CARDIAC DISORDER [None]
